FAERS Safety Report 4752177-6 (Version None)
Quarter: 2005Q3

REPORT INFORMATION
  Report Type: 
  Country: None (occurrence: None)
  Receive Date: 20050824
  Receipt Date: 20050824
  Transmission Date: 20060218
  Serious: Yes (Death, Congenital Anomaly, Other)
  Sender: FDA-Public Use
  Company Number: None

PATIENT
  Age: 1 Day
  Sex: Male
  Weight: 0.4536 kg

DRUGS (1)
  1. ACCUTANE [Suspect]
     Indication: ACNE CYSTIC
     Dosage: 40MG PO  6-8 MONTHS
     Route: 048

REACTIONS (21)
  - ANAL ATRESIA [None]
  - CARDIOMEGALY [None]
  - CLEFT PALATE [None]
  - CONGENITAL ANOMALY [None]
  - CONGENITAL CENTRAL NERVOUS SYSTEM ANOMALY [None]
  - CONGENITAL KNEE DEFORMITY [None]
  - CRYPTORCHISM [None]
  - DRUG EXPOSURE DURING PREGNANCY [None]
  - FINGER DEFORMITY [None]
  - FOOT DEFORMITY [None]
  - IMMATURE RESPIRATORY SYSTEM [None]
  - KIDNEY MALFORMATION [None]
  - LOW SET EARS [None]
  - LOWER LIMB DEFORMITY [None]
  - PREGNANCY [None]
  - PULMONARY MALFORMATION [None]
  - RENAL APLASIA [None]
  - SCOLIOSIS [None]
  - SCROTAL DISORDER [None]
  - SPLEEN DISORDER [None]
  - UPPER LIMB DEFORMITY [None]
